FAERS Safety Report 17751834 (Version 2)
Quarter: 2020Q2

REPORT INFORMATION
  Report Type: Spontaneous
  Country: US (occurrence: US)
  Receive Date: 20200506
  Receipt Date: 20200507
  Transmission Date: 20200714
  Serious: No
  Sender: FDA-Public Use
  Company Number: US-PFIZER INC-2020168773

PATIENT
  Age: 60 Year
  Sex: Female

DRUGS (4)
  1. ZIRABEV [Suspect]
     Active Substance: BEVACIZUMAB-BVZR
     Indication: IRON DEFICIENCY ANAEMIA
  2. ZIRABEV [Suspect]
     Active Substance: BEVACIZUMAB-BVZR
     Indication: LARGE INTESTINE BENIGN NEOPLASM
     Dosage: 1200 MG, EVERY 3 WEEKS
  3. ZIRABEV [Suspect]
     Active Substance: BEVACIZUMAB-BVZR
     Indication: CERVIX CARCINOMA
     Dosage: 400 MG, EVERY 3 WEEKS
  4. ZIRABEV [Suspect]
     Active Substance: BEVACIZUMAB-BVZR
     Indication: LYMPHADENOPATHY

REACTIONS (2)
  - Product use in unapproved indication [Unknown]
  - Off label use [Unknown]
